FAERS Safety Report 21314848 (Version 1)
Quarter: 2022Q3

REPORT INFORMATION
  Report Type: Spontaneous
  Country: ES (occurrence: ES)
  Receive Date: 20220909
  Receipt Date: 20220909
  Transmission Date: 20221027
  Serious: Yes (Death)
  Sender: FDA-Public Use
  Company Number: ES-MYLANLABS-2022M1092431

PATIENT
  Age: 18 Month
  Sex: Female

DRUGS (8)
  1. MITOXANTRONE [Suspect]
     Active Substance: MITOXANTRONE HYDROCHLORIDE
     Indication: Acute megakaryocytic leukaemia
     Dosage: UNK, FIRST COURSE OF MITOXANTRONE
     Route: 065
     Dates: start: 20210310
  2. MITOXANTRONE [Suspect]
     Active Substance: MITOXANTRONE HYDROCHLORIDE
     Dosage: UNK, CYCLE, AS A PART OF CONSOLIDATION COURSE OF HAM REGIMEN CONTAINED HIGH DOSE CYTARABINE [CYTOSIN
     Route: 065
     Dates: start: 202106
  3. CYTARABINE [Suspect]
     Active Substance: CYTARABINE
     Indication: Acute megakaryocytic leukaemia
     Dosage: UNK , CYCLE, AS A PART OF INDUCTION CYCLES OF CYTARABINE, DAUNORUBICIN LIPOSOMAL AND ETOPOSIDE
     Route: 065
     Dates: start: 202104
  4. CYTARABINE [Suspect]
     Active Substance: CYTARABINE
     Dosage: UNK, CYCLE, AS A PART OF CONSOLIDATION COURSE OF HAM REGIMEN CONTAINED HIGH DOSE CYTARABINE [CYTOSIN
     Route: 065
     Dates: start: 202106
  5. DAUNORUBICIN [Suspect]
     Active Substance: DAUNORUBICIN
     Indication: Acute megakaryocytic leukaemia
     Dosage: UNK, CYCLE, AS A PART OF INDUCTION CYCLES OF CYTARABINE, DAUNORUBICIN LIPOSOMAL AND ETOPOSIDE
     Route: 065
     Dates: start: 202104
  6. ETOPOSIDE [Suspect]
     Active Substance: ETOPOSIDE
     Indication: Acute megakaryocytic leukaemia
     Dosage: UNK, CYCLE, AS A PART OF INDUCTION CYCLES OF CYTARABINE, DAUNORUBICIN LIPOSOMAL AND ETOPOSIDE
     Route: 065
     Dates: start: 202104
  7. CLOFARABINE [Suspect]
     Active Substance: CLOFARABINE
     Indication: Acute megakaryocytic leukaemia
     Dosage: UNK, AS A PART OF SALVAGE CHEMOTHERAPY CONTAINED CLOFARABINE AND FLUDARABINE
     Route: 065
     Dates: start: 202108
  8. FLUDARABINE [Suspect]
     Active Substance: FLUDARABINE PHOSPHATE
     Indication: Acute megakaryocytic leukaemia
     Dosage: UNK, AS A PART OF SALVAGE CHEMOTHERAPY CONTAINED CLOFARABINE AND FLUDARABINE
     Route: 065
     Dates: start: 202108

REACTIONS (3)
  - Drug ineffective [Fatal]
  - Disease progression [Fatal]
  - Off label use [Unknown]
